FAERS Safety Report 9151874 (Version 1)
Quarter: 2013Q1

REPORT INFORMATION
  Report Type: Report from Study
  Country: CN (occurrence: CN)
  Receive Date: 20130308
  Receipt Date: 20130308
  Transmission Date: 20140127
  Serious: Yes (Hospitalization)
  Sender: FDA-Public Use
  Company Number: CN-ROCHE-1199788

PATIENT
  Sex: Male

DRUGS (2)
  1. PEGASYS [Suspect]
     Indication: HEPATITIS C
     Route: 058
     Dates: start: 20121227, end: 20130228
  2. PEGASYS [Suspect]
     Route: 058
     Dates: start: 20130228

REACTIONS (2)
  - Palpitations [Unknown]
  - Shock [Unknown]
